FAERS Safety Report 9611243 (Version 1)
Quarter: 2013Q4

REPORT INFORMATION
  Report Type: Spontaneous
  Country: NL (occurrence: NL)
  Receive Date: 20131010
  Receipt Date: 20131010
  Transmission Date: 20140711
  Serious: Yes (Death)
  Sender: FDA-Public Use
  Company Number: NL-AMGEN-NLDSP2013070012

PATIENT
  Age: 54 Year
  Sex: Male

DRUGS (10)
  1. XGEVA [Suspect]
     Indication: PROPHYLAXIS
     Dosage: UNK UNK, Q4WK
     Route: 065
     Dates: start: 20120807
  2. PREDNISON [Concomitant]
     Dosage: 5 MG, UNK
  3. OXYNORM [Concomitant]
     Dosage: 5 MG, UNK
  4. OXYCONTIN [Concomitant]
     Dosage: 20 MG, UNK
  5. REFLUX [Concomitant]
     Dosage: 500 MG, UNK
  6. MOVICOLON [Concomitant]
  7. LOSARTAN KALIUM CF [Concomitant]
     Dosage: 50 MG, UNK
  8. ARTHROTEC [Concomitant]
     Dosage: 50 MG, UNK
  9. ZYTIGA [Concomitant]
     Dosage: 250 MG, UNK
  10. CALCICHEW D3 [Concomitant]
     Dosage: 500 MG/ 400 IE

REACTIONS (1)
  - Death [Fatal]
